FAERS Safety Report 6885549-4 (Version None)
Quarter: 2010Q3

REPORT INFORMATION
  Report Type: 
  Country: None (occurrence: None)
  Receive Date: 20100729
  Receipt Date: 20080507
  Transmission Date: 20110219
  Serious: Yes (Hospitalization, Other)
  Sender: FDA-Public Use
  Company Number: US-PFIZER INC-2008039549

PATIENT
  Sex: Male

DRUGS (2)
  1. CELEBREX [Suspect]
     Indication: ARTHRITIS
     Dosage: 1-2
     Dates: start: 20020901, end: 20021101
  2. BEXTRA [Suspect]
     Indication: ARTHRITIS
     Dates: start: 20021101

REACTIONS (1)
  - MYOCARDIAL INFARCTION [None]
